FAERS Safety Report 10983417 (Version 1)
Quarter: 2015Q2

REPORT INFORMATION
  Report Type: Spontaneous
  Country: US (occurrence: US)
  Receive Date: 20150403
  Receipt Date: 20150403
  Transmission Date: 20150821
  Serious: Yes (Hospitalization, Other)
  Sender: FDA-Public Use
  Company Number: US-PFIZER INC-2015111113

PATIENT
  Sex: Female
  Weight: 1.4 kg

DRUGS (1)
  1. METHIMAZOLE. [Suspect]
     Active Substance: METHIMAZOLE
     Indication: HYPERTHYROIDISM
     Dosage: UNK
     Route: 064

REACTIONS (7)
  - Hyperthyroidism [Recovered/Resolved]
  - Maternal exposure during pregnancy [Unknown]
  - Premature baby [Not Recovered/Not Resolved]
  - Neonatal respiratory distress syndrome [Recovering/Resolving]
  - Respiratory distress [Recovered/Resolved]
  - Ventricular septal defect [Not Recovered/Not Resolved]
  - Congenital hypothyroidism [Not Recovered/Not Resolved]
